FAERS Safety Report 18889088 (Version 1)
Quarter: 2021Q1

REPORT INFORMATION
  Report Type: Spontaneous
  Country: US (occurrence: US)
  Receive Date: 20210213
  Receipt Date: 20210213
  Transmission Date: 20210420
  Serious: No
  Sender: FDA-Public Use
  Company Number: US-SA-2021SA044698

PATIENT
  Age: 40 Year
  Sex: Female

DRUGS (7)
  1. VALACYCLOVIR [Concomitant]
     Active Substance: VALACYCLOVIR HYDROCHLORIDE
  2. FEROSUL [Concomitant]
     Active Substance: FERROUS SULFATE
  3. TACROLIMUS. [Concomitant]
     Active Substance: TACROLIMUS
  4. FLUOCINONIDE. [Concomitant]
     Active Substance: FLUOCINONIDE
  5. MEDROXYPROGESTERONE ACETATE. [Concomitant]
     Active Substance: MEDROXYPROGESTERONE ACETATE
  6. DUPIXENT [Suspect]
     Active Substance: DUPILUMAB
     Dosage: 150 MG/ML (300 MG/2ML), QOW
     Route: 058
  7. IBUPROFEN. [Concomitant]
     Active Substance: IBUPROFEN

REACTIONS (2)
  - Inappropriate schedule of product administration [Unknown]
  - Rash [Not Recovered/Not Resolved]

NARRATIVE: CASE EVENT DATE: 202101
